FAERS Safety Report 19279144 (Version 1)
Quarter: 2021Q2

REPORT INFORMATION
  Report Type: Spontaneous
  Country: US (occurrence: US)
  Receive Date: 20210520
  Receipt Date: 20210520
  Transmission Date: 20210717
  Serious: Yes (Hospitalization)
  Sender: FDA-Public Use
  Company Number: None

PATIENT
  Age: 44 Year
  Sex: Female
  Weight: 102 kg

DRUGS (3)
  1. TRAMADOL 50 MG EVERY 8 HRS [Concomitant]
  2. ALPRAZOLAM 0.5 MG TID [Concomitant]
  3. CASIRIVIMAB + IMDEVIMAB [Suspect]
     Active Substance: CASIRIVIMAB\IMDEVIMAB
     Indication: COVID-19
     Dosage: ?          OTHER FREQUENCY:ONCE;?
     Route: 042
     Dates: start: 20210510, end: 20210510

REACTIONS (9)
  - Vomiting [None]
  - Metabolic acidosis [None]
  - Tubulointerstitial nephritis [None]
  - Nausea [None]
  - Seizure [None]
  - Rash [None]
  - Mental status changes [None]
  - Acute kidney injury [None]
  - Urinary tract infection bacterial [None]

NARRATIVE: CASE EVENT DATE: 20210518
